FAERS Safety Report 10638006 (Version 3)
Quarter: 2014Q4

REPORT INFORMATION
  Report Type: Spontaneous
  Country: US (occurrence: US)
  Receive Date: 20141208
  Receipt Date: 20141229
  Transmission Date: 20150529
  Serious: Yes (Other)
  Sender: FDA-Public Use
  Company Number: US-PFIZER INC-2014333945

PATIENT
  Age: 54 Year
  Sex: Male
  Weight: 66.21 kg

DRUGS (1)
  1. XELJANZ [Suspect]
     Active Substance: TOFACITINIB CITRATE
     Indication: RHEUMATOID ARTHRITIS
     Dosage: 5 MG, 2X/DAY
     Dates: start: 20141022, end: 20141106

REACTIONS (3)
  - Viral infection [Not Recovered/Not Resolved]
  - Tuberculosis [Not Recovered/Not Resolved]
  - Product label issue [Unknown]
